FAERS Safety Report 12842234 (Version 1)
Quarter: 2016Q4

REPORT INFORMATION
  Report Type: Spontaneous
  Country: FR (occurrence: FR)
  Receive Date: 20161013
  Receipt Date: 20161013
  Transmission Date: 20170207
  Serious: Yes (Hospitalization, Other)
  Sender: FDA-Public Use
  Company Number: FR-AMGEN-FRASP2016137773

PATIENT
  Age: 65 Year
  Sex: Female

DRUGS (3)
  1. XGEVA [Suspect]
     Active Substance: DENOSUMAB
     Indication: BREAST CANCER
     Dosage: 10 UNK, UNK
     Route: 058
     Dates: start: 20150429, end: 20160121
  2. EXEMESTANE MYLAN [Concomitant]
     Active Substance: EXEMESTANE
     Indication: BREAST CANCER
     Dosage: 1 UNK, UNK
     Route: 048
     Dates: start: 201607
  3. AFINITOR [Concomitant]
     Active Substance: EVEROLIMUS
     Indication: BREAST CANCER
     Dosage: 5 MG, UNK
     Route: 048
     Dates: start: 201504, end: 201512

REACTIONS (2)
  - Toothache [Recovering/Resolving]
  - Ludwig angina [Recovering/Resolving]

NARRATIVE: CASE EVENT DATE: 201609
